FAERS Safety Report 9077455 (Version 1)
Quarter: 2013Q1

REPORT INFORMATION
  Report Type: Report from Study
  Country: US (occurrence: US)
  Receive Date: 20130130
  Receipt Date: 20130130
  Transmission Date: 20140127
  Serious: No
  Sender: FDA-Public Use
  Company Number: US-ABBOTT-12P-163-0964560-00

PATIENT
  Age: 41 Year
  Sex: Female

DRUGS (8)
  1. HUMIRA 40 MG/0.8 ML PEN [Suspect]
     Indication: PSORIATIC ARTHROPATHY
     Dates: start: 201205
  2. METHOTREXATE [Concomitant]
     Indication: PSORIATIC ARTHROPATHY
  3. HERBAL LIFE MULTIVITAMIN [Concomitant]
     Indication: PRODUCT USED FOR UNKNOWN INDICATION
  4. HERBAL LIFE FISH OIL [Concomitant]
     Indication: PRODUCT USED FOR UNKNOWN INDICATION
  5. HERBAL LIFE THERMOBOND [Concomitant]
     Indication: PRODUCT USED FOR UNKNOWN INDICATION
  6. HERBAL LIFE TOTAL CONTROL [Concomitant]
     Indication: PRODUCT USED FOR UNKNOWN INDICATION
  7. HERBAL LIFE CELLULOSE [Concomitant]
     Indication: PRODUCT USED FOR UNKNOWN INDICATION
  8. ALEVE [Concomitant]
     Indication: PAIN

REACTIONS (4)
  - Fatigue [Not Recovered/Not Resolved]
  - Pain [Not Recovered/Not Resolved]
  - Cough [Not Recovered/Not Resolved]
  - Pyrexia [Not Recovered/Not Resolved]
